FAERS Safety Report 9718533 (Version 1)
Quarter: 2013Q4

REPORT INFORMATION
  Report Type: Spontaneous
  Country: GB (occurrence: GB)
  Receive Date: 20131127
  Receipt Date: 20131127
  Transmission Date: 20140711
  Serious: Yes (Other)
  Sender: FDA-Public Use
  Company Number: GB-ELI_LILLY_AND_COMPANY-GB201311005370

PATIENT
  Age: 25 Year
  Sex: Male

DRUGS (2)
  1. STRATTERA [Suspect]
     Indication: ATTENTION DEFICIT/HYPERACTIVITY DISORDER
     Dosage: 40 MG, UNK
     Route: 048
     Dates: start: 20131025, end: 20131027
  2. NEBIDO [Concomitant]
     Dosage: UNK

REACTIONS (3)
  - Lymphadenopathy [Recovered/Resolved]
  - Swelling face [Unknown]
  - Rash [Recovered/Resolved]
